FAERS Safety Report 4863192-6 (Version None)
Quarter: 2005Q4

REPORT INFORMATION
  Report Type: 
  Country: None (occurrence: None)
  Receive Date: 20051201
  Receipt Date: 20050722
  Transmission Date: 20060501
  Serious: No
  Sender: FDA-Public Use
  Company Number: 2005PV000529

PATIENT
  Age: 73 Year
  Sex: Female
  Weight: 90.7194 kg

DRUGS (2)
  1. BYETTA [Suspect]
     Dosage: SC
     Route: 058
     Dates: start: 20050624
  2. GLYBURIDE [Concomitant]

REACTIONS (1)
  - DRY MOUTH [None]
